FAERS Safety Report 23857083 (Version 1)
Quarter: 2024Q2

REPORT INFORMATION
  Report Type: Spontaneous
  Country: FR (occurrence: FR)
  Receive Date: 20240515
  Receipt Date: 20240515
  Transmission Date: 20240716
  Serious: Yes (Hospitalization)
  Sender: FDA-Public Use
  Company Number: None

PATIENT
  Age: 13 Year
  Sex: Female
  Weight: 33 kg

DRUGS (4)
  1. VANCOMYCIN [Suspect]
     Active Substance: VANCOMYCIN
     Indication: Antibiotic prophylaxis
     Dosage: 1 DOSAGE FORM, QD (LOADING DOSE)
     Route: 042
     Dates: start: 20240405, end: 20240406
  2. VANCOMYCIN [Suspect]
     Active Substance: VANCOMYCIN
     Dosage: 60 MILLIGRAM/KILOGRAM, QD (LOADING DOSE)
     Route: 042
     Dates: start: 20240406, end: 20240408
  3. GENTAMICIN [Suspect]
     Active Substance: GENTAMICIN
     Indication: Antibiotic prophylaxis
     Dosage: 1 DOSAGE FORM, QD
     Route: 042
     Dates: start: 20240406, end: 20240407
  4. IOMERON [Concomitant]
     Active Substance: IOMEPROL
     Indication: Computerised tomogram
     Dosage: 40 MILLILITER (350 MG IODINE/ML)
     Route: 042
     Dates: start: 20240407, end: 20240407

REACTIONS (3)
  - Renal tubular necrosis [Recovering/Resolving]
  - Product prescribing error [Recovering/Resolving]
  - Accidental overdose [Recovering/Resolving]

NARRATIVE: CASE EVENT DATE: 20240406
